FAERS Safety Report 6246247-3 (Version None)
Quarter: 2009Q2

REPORT INFORMATION
  Report Type: 
  Country: None (occurrence: None)
  Receive Date: 20090626
  Receipt Date: 20090616
  Transmission Date: 20091009
  Serious: No
  Sender: FDA-Public Use
  Company Number: US-EISAI INC.-E3810-02921-SPO-US

PATIENT
  Age: 64 Year
  Sex: Female

DRUGS (5)
  1. ACIPHEX [Suspect]
     Route: 048
     Dates: start: 20020101, end: 20090101
  2. ZANTAC [Concomitant]
     Indication: GASTRITIS
     Route: 048
     Dates: start: 20090501
  3. XANAX [Concomitant]
     Route: 048
  4. TYLENOL (CAPLET) [Concomitant]
     Route: 048
  5. PREMARIN [Concomitant]
     Route: 048

REACTIONS (8)
  - ABDOMINAL DISTENSION [None]
  - CONSTIPATION [None]
  - GASTRIC DISORDER [None]
  - GASTRITIS [None]
  - IMPAIRED GASTRIC EMPTYING [None]
  - POLYP [None]
  - TINNITUS [None]
  - WEIGHT INCREASED [None]
